FAERS Safety Report 12189147 (Version 2)
Quarter: 2016Q2

REPORT INFORMATION
  Report Type: Report from Study
  Country: JP (occurrence: JP)
  Receive Date: 20160317
  Receipt Date: 20160427
  Transmission Date: 20160815
  Serious: Yes (Hospitalization)
  Sender: FDA-Public Use
  Company Number: JP-DSJP-DSJ-2016-109303

PATIENT
  Age: 82 Year
  Sex: Female
  Weight: 55 kg

DRUGS (14)
  1. ULTIBRO [Concomitant]
     Active Substance: GLYCOPYRRONIUM\INDACATEROL
     Dosage: 1 INHALATION/DAY
     Route: 055
  2. MAINTATE [Concomitant]
     Active Substance: BISOPROLOL FUMARATE
     Dosage: 1.25MG/DAY
     Route: 048
  3. EDOXABAN [Suspect]
     Active Substance: EDOXABAN TOSYLATE
     Indication: ATRIAL FIBRILLATION
     Dosage: 30 MG, QD
     Route: 048
     Dates: start: 20151027, end: 20160227
  4. OPALMON [Concomitant]
     Active Substance: LIMAPROST
     Dosage: 15UG/DAY
     Route: 048
  5. MOBIC [Concomitant]
     Active Substance: MELOXICAM
     Dosage: 10MG/DAY
     Route: 048
     Dates: start: 20151026
  6. BAYASPIRIN [Concomitant]
     Active Substance: ASPIRIN
     Dosage: 100MG/DAY
     Route: 048
     Dates: end: 20160225
  7. ACTONEL [Concomitant]
     Active Substance: RISEDRONATE SODIUM
     Dosage: 17.5 MG, ONCE EVERY 1 WK
     Route: 048
  8. THYRADIN-S [Concomitant]
     Active Substance: LEVOTHYROXINE
     Dosage: 50UG/DAY
     Route: 048
  9. AMLODIPINE [Concomitant]
     Active Substance: AMLODIPINE BESYLATE
     Dosage: 2.5MG/DAY
     Route: 048
     Dates: start: 20151112
  10. BAYASPIRIN [Concomitant]
     Active Substance: ASPIRIN
     Dosage: 100MG/DAY
     Route: 048
     Dates: start: 20160301
  11. TAKEPRON [Concomitant]
     Active Substance: LANSOPRAZOLE
     Dosage: 30MG/DAY
     Route: 048
  12. SUNRYTHM [Concomitant]
     Active Substance: PILSICAINIDE HYDROCHLORIDE
     Indication: ATRIAL FIBRILLATION
     Dosage: 50MG/DAY
     Route: 048
     Dates: start: 20151026
  13. FERROMIA [Concomitant]
     Active Substance: FERROUS CITRATE
     Dosage: 100MG/DAY
     Route: 048
     Dates: start: 20160302
  14. PRAVASTATIN [Concomitant]
     Active Substance: PRAVASTATIN\PRAVASTATIN SODIUM
     Dosage: 10MG/DAY
     Route: 048

REACTIONS (1)
  - Occult blood positive [Recovered/Resolved]

NARRATIVE: CASE EVENT DATE: 20160215
